FAERS Safety Report 9563983 (Version 1)
Quarter: 2013Q3

REPORT INFORMATION
  Report Type: Spontaneous
  Country: GB (occurrence: GB)
  Receive Date: 20130928
  Receipt Date: 20130928
  Transmission Date: 20140515
  Serious: Yes (Life-Threatening, Hospitalization)
  Sender: FDA-Public Use
  Company Number: GB-009507513-1309GBR013181

PATIENT
  Age: 56 Year
  Sex: Male
  Weight: 96.35 kg

DRUGS (3)
  1. CARBIDOPA (+) LEVODOPA [Suspect]
     Indication: PARKINSON^S DISEASE
     Dosage: UNK
     Route: 048
     Dates: end: 20130902
  2. RASAGILINE [Concomitant]
     Dosage: UNK
  3. ROPINIROLE [Concomitant]
     Dosage: UNK

REACTIONS (1)
  - Neutropenia [Recovered/Resolved]
